FAERS Safety Report 9372306 (Version 4)
Quarter: 2013Q4

REPORT INFORMATION
  Report Type: Spontaneous
  Country: GB (occurrence: GB)
  Receive Date: 20130627
  Receipt Date: 20131127
  Transmission Date: 20140711
  Serious: Yes (Other)
  Sender: FDA-Public Use
  Company Number: PHFR2013GB003653

PATIENT
  Age: 32 Year
  Sex: Female

DRUGS (4)
  1. CLOZARIL [Suspect]
     Indication: SCHIZOAFFECTIVE DISORDER
     Dosage: 700 MG, UNK
     Route: 048
     Dates: start: 20130107
  2. PRIADEL//LITHIUM CARBONATE [Concomitant]
     Indication: AFFECTIVE DISORDER
     Dosage: 1200 MG, NOCTE
  3. SENOKOT                                 /UNK/ [Concomitant]
     Indication: CONSTIPATION
     Dosage: NOCTE
     Route: 048
     Dates: start: 201301
  4. LORAZEPAM [Concomitant]
     Indication: AGITATION
     Dosage: 2 MG, UNK
     Route: 048

REACTIONS (1)
  - Intracranial pressure increased [Recovered/Resolved]
